FAERS Safety Report 8415936-4 (Version None)
Quarter: 2012Q2

REPORT INFORMATION
  Report Type: 
  Country: None (occurrence: None)
  Receive Date: 20120606
  Receipt Date: 20120531
  Transmission Date: 20120825
  Serious: Yes (Hospitalization, Other)
  Sender: FDA-Public Use
  Company Number: FR-PFIZER INC-FR-WYE-H10428009

PATIENT
  Sex: Male

DRUGS (6)
  1. LYRICA [Suspect]
     Dosage: UNKNOWN
     Route: 048
  2. GLUCOPHAGE [Suspect]
     Dosage: 3000 MG,FREQUENCY UNKNOWN
     Route: 048
     Dates: end: 20090619
  3. SIMVASTATIN [Suspect]
     Dosage: UNKNOWN
     Route: 048
  4. BYETTA [Suspect]
     Indication: DIABETES MELLITUS
     Dosage: 20 MG, 1X/DAY
     Route: 058
     Dates: start: 20081101, end: 20090619
  5. BISOPROLOL FUMARATE [Suspect]
     Dosage: UNKNOWN
     Route: 048
  6. PANTOPRAZOLE SODIUM [Suspect]
     Dosage: UNKNOWN
     Route: 048

REACTIONS (1)
  - HEPATIC NEOPLASM MALIGNANT [None]
